FAERS Safety Report 16366242 (Version 2)
Quarter: 2019Q2

REPORT INFORMATION
  Report Type: Spontaneous
  Country: AU (occurrence: AU)
  Receive Date: 20190529
  Receipt Date: 20190531
  Transmission Date: 20190711
  Serious: Yes (Other)
  Sender: FDA-Public Use
  Company Number: AU-009507513-1905AUS011983

PATIENT
  Sex: Male

DRUGS (1)
  1. EZETIMIBE. [Suspect]
     Active Substance: EZETIMIBE
     Indication: HYPERCHOLESTEROLAEMIA
     Dosage: UNK
     Route: 048
     Dates: start: 201807, end: 201808

REACTIONS (2)
  - Suicidal ideation [Recovered/Resolved]
  - Affective disorder [Unknown]

NARRATIVE: CASE EVENT DATE: 2018
